FAERS Safety Report 6520434-9 (Version None)
Quarter: 2009Q4

REPORT INFORMATION
  Report Type: 
  Country: None (occurrence: None)
  Receive Date: 20091229
  Receipt Date: 20091218
  Transmission Date: 20100525
  Serious: Yes (Hospitalization, Other)
  Sender: FDA-Public Use
  Company Number: PHHY2009BR56588

PATIENT
  Age: 66 Year
  Sex: Male

DRUGS (5)
  1. DIOVAN AMLO FIX [Suspect]
     Indication: HYPERTENSION
     Dosage: 1 DF, BID (MORNING AND NIGHT)
  2. DIOVAN AMLO [Suspect]
     Indication: HYPERTENSION
     Dosage: UNK
     Dates: start: 20080121
  3. ARAVA [Concomitant]
     Indication: RHEUMATOID ARTHRITIS
     Dosage: 1 TABLET (20 MG) DAILY
     Route: 048
  4. OMEPRAZOLE [Concomitant]
     Indication: GASTRITIS
     Dosage: 1 CAPSULE (20 MG) DAILY
     Route: 048
  5. SIMVASTATIN [Concomitant]
     Indication: BLOOD CHOLESTEROL ABNORMAL
     Dosage: 1 TABLET (20 MG) DAILY
     Route: 048

REACTIONS (8)
  - BLOOD PRESSURE INCREASED [None]
  - DRUG DISPENSING ERROR [None]
  - FALL [None]
  - FEMUR FRACTURE [None]
  - PNEUMONIA [None]
  - POLLAKIURIA [None]
  - SURGERY [None]
  - THIRST [None]
